FAERS Safety Report 21044897 (Version 1)
Quarter: 2022Q3

REPORT INFORMATION
  Report Type: Spontaneous
  Country: US (occurrence: US)
  Receive Date: 20220705
  Receipt Date: 20220705
  Transmission Date: 20221027
  Serious: No
  Sender: FDA-Public Use
  Company Number: US-UPSHER-SMITH LABORATORIES, LLC-2021USL00469

PATIENT
  Age: 62 Year
  Sex: Male

DRUGS (3)
  1. TESTOSTERONE [Suspect]
     Active Substance: TESTOSTERONE
     Dosage: UNK, 2.5 PUMPS, TO CHEST AND STOMACH
     Route: 061
  2. TESTOSTERONE [Suspect]
     Active Substance: TESTOSTERONE
     Dosage: UNK, 3-4 PUMPS, TO CHEST AND STOMACH
     Route: 061
  3. TESTOSTERONE [Suspect]
     Active Substance: TESTOSTERONE
     Dosage: UNK, 2.5 PUMPS, TO CHEST AND STOMACH
     Route: 061

REACTIONS (3)
  - Product dose omission issue [Recovered/Resolved]
  - Fatigue [Recovered/Resolved]
  - Hot flush [Recovered/Resolved]
